FAERS Safety Report 5204968-5 (Version None)
Quarter: 2007Q1

REPORT INFORMATION
  Report Type: 
  Country: None (occurrence: None)
  Receive Date: 20070110
  Receipt Date: 20061020
  Transmission Date: 20070707
  Serious: No
  Sender: FDA-Public Use
  Company Number: US-BRISTOL-MYERS SQUIBB COMPANY-13513585

PATIENT
  Age: 50 Year
  Sex: Female

DRUGS (2)
  1. ABILIFY [Suspect]
     Indication: BIPOLAR DISORDER
     Route: 048
     Dates: end: 20060905
  2. ZYPREXA [Concomitant]

REACTIONS (4)
  - AKINESIA [None]
  - COGWHEEL RIGIDITY [None]
  - TREMOR [None]
  - TRISMUS [None]
